FAERS Safety Report 6598670-5 (Version None)
Quarter: 2010Q1

REPORT INFORMATION
  Report Type: 
  Country: None (occurrence: None)
  Receive Date: 20100224
  Receipt Date: 20100219
  Transmission Date: 20100710
  Serious: Yes (Life-Threatening)
  Sender: FDA-Public Use
  Company Number: DE-JNJFOC-20100207796

PATIENT
  Sex: Female

DRUGS (7)
  1. RISPERDAL [Suspect]
     Indication: DRUG USE FOR UNKNOWN INDICATION
     Route: 048
  2. MIRTAZAPINE [Concomitant]
     Route: 048
  3. MIRTAZAPINE [Concomitant]
     Route: 048
  4. TAVOR [Concomitant]
     Route: 048
  5. TAVOR [Concomitant]
     Route: 048
  6. L-THYROXIN [Concomitant]
     Route: 048
  7. DELIX [Concomitant]
     Route: 048

REACTIONS (2)
  - CARDIAC ARREST [None]
  - PULMONARY EMBOLISM [None]
